FAERS Safety Report 10236500 (Version 1)
Quarter: 2014Q2

REPORT INFORMATION
  Report Type: Spontaneous
  Country: US (occurrence: US)
  Receive Date: 20140613
  Receipt Date: 20140613
  Transmission Date: 20141212
  Serious: No
  Sender: FDA-Public Use
  Company Number: US-PFIZER INC-2014161796

PATIENT
  Age: 47 Year
  Sex: Female
  Weight: 69.4 kg

DRUGS (2)
  1. LYRICA [Suspect]
     Indication: FIBROMYALGIA
     Dosage: ONE CAPSULE OF 50MG IN THE MORNING AND ONE CAPSULE 75MG ORALLY AT NIGHT
     Route: 048
     Dates: start: 201405, end: 2014
  2. LYRICA [Suspect]
     Dosage: ONE CAPSULE OF 75MG IN THE MORNING AND TWO CAPSULES OF 75MG AT NIGHT
     Route: 048
     Dates: start: 2014

REACTIONS (1)
  - Peripheral swelling [Recovered/Resolved]
